FAERS Safety Report 21816492 (Version 1)
Quarter: 2023Q1

REPORT INFORMATION
  Report Type: Spontaneous
  Country: CA (occurrence: CA)
  Receive Date: 20230104
  Receipt Date: 20230104
  Transmission Date: 20230418
  Serious: Yes (Hospitalization, Other)
  Sender: FDA-Public Use
  Company Number: CA-AUROBINDO-AUR-APL-2022-056971

PATIENT
  Age: 52 Year
  Sex: Male

DRUGS (7)
  1. GABAPENTIN [Suspect]
     Active Substance: GABAPENTIN
     Indication: Food craving
     Dosage: 300 MILLIGRAM, ONCE A DAY
     Route: 048
  2. GABAPENTIN [Suspect]
     Active Substance: GABAPENTIN
     Dosage: 300 MILLIGRAM, 3 TIMES A DAY
     Route: 048
  3. FENOFIBRATE [Suspect]
     Active Substance: FENOFIBRATE
     Indication: Product used for unknown indication
     Dosage: 200 MILLIGRAM, ONCE A DAY
     Route: 065
  4. SANDOSTATIN [Suspect]
     Active Substance: OCTREOTIDE ACETATE
     Indication: Acromegaly
     Dosage: 30 MILLIGRAM (1 EVERY MONTH)
     Route: 030
  5. TESTOSTERONE [Concomitant]
     Active Substance: TESTOSTERONE
     Indication: Blood testosterone decreased
     Dosage: UNK
     Route: 065
  6. VARENICLINE TARTRATE [Concomitant]
     Active Substance: VARENICLINE TARTRATE
     Indication: Smoking cessation therapy
     Dosage: UNK
     Route: 065
  7. NALTREXONE HYDROCHLORIDE [Concomitant]
     Active Substance: NALTREXONE HYDROCHLORIDE
     Indication: Alcohol abuse
     Dosage: 50 MILLIGRAM
     Route: 065

REACTIONS (34)
  - Hypoaesthesia [Not Recovered/Not Resolved]
  - Asthenia [Not Recovered/Not Resolved]
  - Back pain [Not Recovered/Not Resolved]
  - Blood cholesterol abnormal [Not Recovered/Not Resolved]
  - Blood glucose abnormal [Not Recovered/Not Resolved]
  - Blood pressure increased [Not Recovered/Not Resolved]
  - Blood pressure systolic increased [Not Recovered/Not Resolved]
  - Blood triglycerides increased [Not Recovered/Not Resolved]
  - Dizziness [Not Recovered/Not Resolved]
  - Dysarthria [Not Recovered/Not Resolved]
  - Fall [Not Recovered/Not Resolved]
  - Fatigue [Not Recovered/Not Resolved]
  - Feeling abnormal [Not Recovered/Not Resolved]
  - Food craving [Not Recovered/Not Resolved]
  - Head injury [Not Recovered/Not Resolved]
  - Heart rate increased [Not Recovered/Not Resolved]
  - Hot flush [Not Recovered/Not Resolved]
  - Influenza [Not Recovered/Not Resolved]
  - Injection site mass [Not Recovered/Not Resolved]
  - Insomnia [Not Recovered/Not Resolved]
  - Joint range of motion decreased [Not Recovered/Not Resolved]
  - Malaise [Not Recovered/Not Resolved]
  - Musculoskeletal chest pain [Not Recovered/Not Resolved]
  - Needle track marks [Not Recovered/Not Resolved]
  - Pain [Not Recovered/Not Resolved]
  - Pallor [Not Recovered/Not Resolved]
  - Panic attack [Not Recovered/Not Resolved]
  - Paraesthesia [Not Recovered/Not Resolved]
  - Slow speech [Not Recovered/Not Resolved]
  - Stress [Not Recovered/Not Resolved]
  - Thinking abnormal [Not Recovered/Not Resolved]
  - Tinnitus [Not Recovered/Not Resolved]
  - Weight decreased [Not Recovered/Not Resolved]
  - Anxiety [Not Recovered/Not Resolved]
